FAERS Safety Report 7030061-5 (Version None)
Quarter: 2010Q4

REPORT INFORMATION
  Report Type: 
  Country: None (occurrence: None)
  Receive Date: 20101006
  Receipt Date: 20100927
  Transmission Date: 20110411
  Serious: No
  Sender: FDA-Public Use
  Company Number: US-JNJFOC-20100908704

PATIENT
  Sex: Male
  Weight: 87.54 kg

DRUGS (2)
  1. DURAGESIC-100 [Suspect]
     Indication: PAIN
     Route: 062
  2. ALL OTHER THERAPEUTICS [Concomitant]
     Route: 065

REACTIONS (3)
  - PRODUCT ADHESION ISSUE [None]
  - SEBORRHOEA [None]
  - WRONG TECHNIQUE IN DRUG USAGE PROCESS [None]
